FAERS Safety Report 5549959-X (Version None)
Quarter: 2007Q4

REPORT INFORMATION
  Report Type: 
  Country: None (occurrence: None)
  Receive Date: 20071212
  Receipt Date: 20070419
  Transmission Date: 20080405
  Serious: No
  Sender: FDA-Public Use
  Company Number: US-AMGEN-KDL220689

PATIENT
  Sex: Female

DRUGS (1)
  1. ENBREL [Suspect]
     Indication: JUVENILE ARTHRITIS
     Dates: start: 20050427

REACTIONS (4)
  - LYMPHADENOPATHY [None]
  - PETECHIAE [None]
  - PYREXIA [None]
  - RASH PRURITIC [None]
